FAERS Safety Report 5066018-3 (Version None)
Quarter: 2006Q3

REPORT INFORMATION
  Report Type: 
  Country: None (occurrence: None)
  Receive Date: 20060726
  Receipt Date: 20060710
  Transmission Date: 20061208
  Serious: Yes (Other)
  Sender: FDA-Public Use
  Company Number: 2006RR-02988

PATIENT
  Age: 44 Year
  Sex: Male
  Weight: 75 kg

DRUGS (1)
  1. CIPROFLOXACIN [Suspect]
     Indication: URINARY TRACT INFECTION
     Dosage: 500 MG, ORAL
     Route: 048
     Dates: start: 20060508, end: 20060510

REACTIONS (6)
  - HALLUCINATION [None]
  - HYPERACUSIS [None]
  - HYPERSENSITIVITY [None]
  - PARANOIA [None]
  - PAROSMIA [None]
  - RASH [None]
